FAERS Safety Report 5215923-3 (Version None)
Quarter: 2007Q1

REPORT INFORMATION
  Report Type: 
  Country: None (occurrence: None)
  Receive Date: 20070123
  Receipt Date: 20070112
  Transmission Date: 20070707
  Serious: Yes (Hospitalization, Disabling, Other)
  Sender: FDA-Public Use
  Company Number: US-ELI_LILLY_AND_COMPANY-USA040977340

PATIENT
  Age: 83 Year
  Sex: Female
  Weight: 52.727 kg

DRUGS (6)
  1. FORTEO [Suspect]
     Indication: OSTEOPOROSIS
     Dosage: 20 UG, DAILY (1/D)
     Route: 065
     Dates: start: 20040101
  2. CALCIUM AND VITAMIN D [Concomitant]
     Dosage: UNK, UNKNOWN
  3. AVAPRO [Concomitant]
     Dosage: UNK, UNKNOWN
  4. MOBIC [Concomitant]
     Dosage: UNK, UNKNOWN
  5. PLAVIX [Concomitant]
     Dosage: UNK, UNKNOWN
  6. PRAVACHOL [Concomitant]
     Dosage: UNK, UNKNOWN

REACTIONS (26)
  - ADVERSE EVENT [None]
  - ANAEMIA [None]
  - ASTHENIA [None]
  - BLINDNESS [None]
  - BLOOD PRESSURE INCREASED [None]
  - CONFUSIONAL STATE [None]
  - DEHYDRATION [None]
  - DISCOMFORT [None]
  - DISORIENTATION [None]
  - DIZZINESS [None]
  - DRUG DOSE OMISSION [None]
  - DRUG WITHDRAWAL SYNDROME [None]
  - FEELING ABNORMAL [None]
  - GLAUCOMA [None]
  - HEARING IMPAIRED [None]
  - INCOHERENT [None]
  - MACULAR DEGENERATION [None]
  - MUSCLE SPASMS [None]
  - NAUSEA [None]
  - PAIN IN EXTREMITY [None]
  - PHARMACEUTICAL PRODUCT COMPLAINT [None]
  - RED BLOOD CELL ABNORMALITY [None]
  - VERTIGO [None]
  - VISUAL ACUITY REDUCED [None]
  - VISUAL DISTURBANCE [None]
  - WEIGHT DECREASED [None]
